FAERS Safety Report 4378178-8 (Version None)
Quarter: 2004Q2

REPORT INFORMATION
  Report Type: 
  Country: None (occurrence: None)
  Receive Date: 20040614
  Receipt Date: 20040614
  Transmission Date: 20050107
  Serious: Yes (Hospitalization)
  Sender: FDA-Public Use
  Company Number: None

PATIENT
  Age: 53 Year
  Sex: Male
  Weight: 58.9 kg

DRUGS (6)
  1. PACLITAXEL [Suspect]
     Indication: OESOPHAGEAL CARCINOMA
     Dosage: 50MG/M2 DAYS 1, 8, 15, 22, 29
     Dates: start: 20040601
  2. ACIPHEX [Concomitant]
  3. CISPLATIN [Suspect]
     Dosage: 30MG/M2 DAYS 1, 8, 15,22,29
     Dates: start: 20040601
  4. DECADRON [Concomitant]
  5. PACLITAXEL [Concomitant]
  6. TYLENOL [Concomitant]

REACTIONS (1)
  - RADIATION PERICARDITIS [None]
